FAERS Safety Report 4323476-7 (Version None)
Quarter: 2004Q1

REPORT INFORMATION
  Report Type: 
  Country: None (occurrence: None)
  Receive Date: 20040324
  Receipt Date: 20040324
  Transmission Date: 20041129
  Serious: Yes (Hospitalization)
  Sender: FDA-Public Use
  Company Number: None

PATIENT
  Age: 49 Year
  Sex: Female
  Weight: 101.1521 kg

DRUGS (4)
  1. METFORMIN HCL [Suspect]
     Indication: DIABETES MELLITUS NON-INSULIN-DEPENDENT
     Dosage: ORAL
     Route: 048
     Dates: start: 20040315, end: 20040322
  2. VENLAFAXINE [Concomitant]
  3. LEVOTHYROXINE SODIUM [Concomitant]
  4. SIMVASTATIN [Concomitant]

REACTIONS (5)
  - DEHYDRATION [None]
  - FLUID INTAKE REDUCED [None]
  - HYPERGLYCAEMIA [None]
  - LACTIC ACIDOSIS [None]
  - NAUSEA [None]
